FAERS Safety Report 17583317 (Version 1)
Quarter: 2020Q1

REPORT INFORMATION
  Report Type: Spontaneous
  Country: CA (occurrence: CA)
  Receive Date: 20200326
  Receipt Date: 20200326
  Transmission Date: 20200409
  Serious: Yes (Other)
  Sender: FDA-Public Use
  Company Number: CA-AUROBINDO-AUR-APL-2020-014600

PATIENT
  Age: 54 Year
  Sex: Female

DRUGS (6)
  1. RABEPRAZOLE [Concomitant]
     Active Substance: RABEPRAZOLE
     Indication: PRODUCT USED FOR UNKNOWN INDICATION
     Dosage: UNK
     Route: 065
  2. VENLAFAXINE HYDROCHLORIDE. [Concomitant]
     Active Substance: VENLAFAXINE HYDROCHLORIDE
     Indication: PRODUCT USED FOR UNKNOWN INDICATION
     Dosage: UNK
     Route: 065
  3. ACTEMRA [Suspect]
     Active Substance: TOCILIZUMAB
     Indication: RHEUMATOID ARTHRITIS
     Dosage: 800 MILLIGRAM (1 EVERY 4 WEEKS)
     Route: 042
  4. NORTRIPTYLINE [Concomitant]
     Active Substance: NORTRIPTYLINE
     Indication: PRODUCT USED FOR UNKNOWN INDICATION
     Dosage: UNK
     Route: 065
  5. TRAMADOL HYDROCHLORIDE. [Suspect]
     Active Substance: TRAMADOL HYDROCHLORIDE
     Indication: PRODUCT USED FOR UNKNOWN INDICATION
     Dosage: UNK
     Route: 065
  6. METHOTREXATE. [Concomitant]
     Active Substance: METHOTREXATE
     Indication: PRODUCT USED FOR UNKNOWN INDICATION
     Dosage: UNK
     Route: 065

REACTIONS (33)
  - Blood pressure increased [Unknown]
  - Respiratory rate increased [Unknown]
  - Seasonal allergy [Unknown]
  - Sinusitis [Unknown]
  - Hypertension [Unknown]
  - Salivary gland disorder [Unknown]
  - Superficial injury of eye [Unknown]
  - Arthralgia [Unknown]
  - Pain in extremity [Unknown]
  - Pharyngitis [Unknown]
  - Blood pressure systolic increased [Unknown]
  - Corneal abrasion [Unknown]
  - Ear pain [Unknown]
  - Fatigue [Unknown]
  - Glossodynia [Unknown]
  - Groin infection [Unknown]
  - Impaired healing [Unknown]
  - Hordeolum [Unknown]
  - Malaise [Unknown]
  - Nasopharyngitis [Unknown]
  - Rash [Unknown]
  - Influenza [Unknown]
  - Oral herpes [Unknown]
  - Oropharyngeal pain [Unknown]
  - Oxygen saturation decreased [Unknown]
  - Blister [Unknown]
  - Bronchitis [Unknown]
  - Drug ineffective [Unknown]
  - Gastroenteritis viral [Unknown]
  - Musculoskeletal pain [Unknown]
  - Pain [Unknown]
  - Cough [Unknown]
  - Nausea [Unknown]
